FAERS Safety Report 22182511 (Version 1)
Quarter: 2023Q2

REPORT INFORMATION
  Report Type: Spontaneous
  Country: CA (occurrence: None)
  Receive Date: 20230406
  Receipt Date: 20230406
  Transmission Date: 20230721
  Serious: Yes (Other)
  Sender: FDA-Public Use
  Company Number: 2023A076756

PATIENT
  Age: 54 Year
  Sex: Female

DRUGS (24)
  1. BUDESONIDE\FORMOTEROL FUMARATE [Suspect]
     Active Substance: BUDESONIDE\FORMOTEROL FUMARATE
     Indication: Product used for unknown indication
     Dosage: 3.0 DOSAGE FORMS
     Route: 055
  2. APIXABAN [Suspect]
     Active Substance: APIXABAN
     Indication: Product used for unknown indication
  3. BUPROPION HYDROCHLORIDE [Suspect]
     Active Substance: BUPROPION HYDROCHLORIDE
     Indication: Product used for unknown indication
  4. CLONAZEPAM [Suspect]
     Active Substance: CLONAZEPAM
     Indication: Product used for unknown indication
  5. ESOMEPRAZOLE MAGNESIUM [Suspect]
     Active Substance: ESOMEPRAZOLE MAGNESIUM
     Indication: Product used for unknown indication
     Route: 048
  6. LEVOTHYROXINE SODIUM [Suspect]
     Active Substance: LEVOTHYROXINE SODIUM
     Indication: Product used for unknown indication
  7. LIOTHYRONINE SODIUM [Suspect]
     Active Substance: LIOTHYRONINE SODIUM
     Indication: Product used for unknown indication
  8. METOPROLOL FUMARATE [Suspect]
     Active Substance: METOPROLOL FUMARATE
     Indication: Product used for unknown indication
  9. MOMETASONE [Suspect]
     Active Substance: MOMETASONE
     Indication: Product used for unknown indication
  10. MONTELUKAST SODIUM [Suspect]
     Active Substance: MONTELUKAST SODIUM
     Indication: Product used for unknown indication
  11. NASONEX [Suspect]
     Active Substance: MOMETASONE FUROATE
     Indication: Product used for unknown indication
  12. PERINDOPRIL [Suspect]
     Active Substance: PERINDOPRIL
  13. PREDNISONE [Suspect]
     Active Substance: PREDNISONE
     Indication: Product used for unknown indication
  14. DIETARY SUPPLEMENT\HERBALS [Suspect]
     Active Substance: DIETARY SUPPLEMENT\HERBALS
     Indication: Product used for unknown indication
     Dosage: 1000.0MG UNKNOWN
  15. ALBUTEROL [Suspect]
     Active Substance: ALBUTEROL
     Indication: Product used for unknown indication
  16. SODIUM BICARBONATE [Suspect]
     Active Substance: SODIUM BICARBONATE
     Indication: Product used for unknown indication
  17. SPIRONOLACTONE [Suspect]
     Active Substance: SPIRONOLACTONE
     Indication: Product used for unknown indication
  18. TRAMADOL [Suspect]
     Active Substance: TRAMADOL
     Indication: Product used for unknown indication
  19. TRAZODONE [Suspect]
     Active Substance: TRAZODONE HYDROCHLORIDE
     Indication: Product used for unknown indication
  20. ACYCLOVIR [Concomitant]
     Active Substance: ACYCLOVIR
  21. CYANOCOBALAMIN [Concomitant]
     Active Substance: CYANOCOBALAMIN
  22. ERGOCALCIFEROL [Concomitant]
     Active Substance: ERGOCALCIFEROL
  23. FORMOTEROL [Concomitant]
     Active Substance: FORMOTEROL
  24. ASCORBIC ACID [Concomitant]
     Active Substance: ASCORBIC ACID

REACTIONS (20)
  - Asthma [Recovered/Resolved]
  - Blood test abnormal [Recovered/Resolved]
  - Burning sensation [Recovered/Resolved]
  - Cardiac disorder [Recovered/Resolved]
  - Carpal tunnel syndrome [Recovered/Resolved]
  - Dyspnoea [Recovered/Resolved]
  - Fibromyalgia [Recovered/Resolved]
  - Gastrooesophageal reflux disease [Recovered/Resolved]
  - Headache [Recovered/Resolved]
  - Hypertension [Recovered/Resolved]
  - Hypothyroidism [Recovered/Resolved]
  - Loss of personal independence in daily activities [Recovered/Resolved]
  - Polycystic ovaries [Recovered/Resolved]
  - Renal disorder [Recovered/Resolved]
  - Rhinitis allergic [Recovered/Resolved]
  - Sensitisation [Recovered/Resolved]
  - Sleep apnoea syndrome [Recovered/Resolved]
  - Sleep disorder due to a general medical condition [Recovered/Resolved]
  - Wheezing [Recovered/Resolved]
  - Therapeutic product effect incomplete [Recovered/Resolved]
